FAERS Safety Report 14088694 (Version 1)
Quarter: 2017Q4

REPORT INFORMATION
  Report Type: Spontaneous
  Country: US (occurrence: US)
  Receive Date: 20171013
  Receipt Date: 20171013
  Transmission Date: 20180321
  Serious: No
  Sender: FDA-Public Use
  Company Number: US-SA-2017SA156155

PATIENT
  Age: 58 Year
  Sex: Male

DRUGS (4)
  1. AUBAGIO [Suspect]
     Active Substance: TERIFLUNOMIDE
     Indication: MULTIPLE SCLEROSIS
     Route: 048
  2. LISINOPRIL. [Concomitant]
     Active Substance: LISINOPRIL
  3. METFORMIN HYDROCHLORIDE. [Concomitant]
     Active Substance: METFORMIN HYDROCHLORIDE
  4. GLIMEPIRIDE. [Concomitant]
     Active Substance: GLIMEPIRIDE

REACTIONS (1)
  - Diarrhoea [Recovered/Resolved]
